FAERS Safety Report 9216267 (Version 1)
Quarter: 2013Q2

REPORT INFORMATION
  Report Type: Spontaneous
  Country: GB (occurrence: None)
  Receive Date: 20130403
  Receipt Date: 20130403
  Transmission Date: 20140414
  Serious: Yes (Other)
  Sender: FDA-Public Use
  Company Number: GB-DEXPHARM-20130134

PATIENT
  Age: 50 Year
  Sex: Female
  Weight: 54.88 kg

DRUGS (3)
  1. DICLOFENAC [Suspect]
     Indication: BACK PAIN
     Route: 048
  2. OMEPRAZOLE [Concomitant]
  3. TAMOXIFEN [Concomitant]

REACTIONS (3)
  - Bone pain [None]
  - Pain in extremity [None]
  - Pain in extremity [None]
